FAERS Safety Report 17238379 (Version 1)
Quarter: 2020Q1

REPORT INFORMATION
  Report Type: Spontaneous
  Country: US (occurrence: US)
  Receive Date: 20200103
  Receipt Date: 20200103
  Transmission Date: 20200409
  Serious: Yes (Other)
  Sender: FDA-Public Use
  Company Number: None

PATIENT
  Age: 23 Month
  Sex: Female
  Weight: 9.45 kg

DRUGS (7)
  1. GTUBE FED [Concomitant]
  2. NEBULIZER [Concomitant]
     Active Substance: DEVICE
  3. PRAVACAID [Concomitant]
  4. VALPROIC ACID. [Concomitant]
     Active Substance: VALPROIC ACID
  5. ALBUTEROL. [Concomitant]
     Active Substance: ALBUTEROL
  6. KEPPRA [Suspect]
     Active Substance: LEVETIRACETAM
     Indication: SEIZURE
     Dosage: ?          QUANTITY:3 ML;OTHER ROUTE:GTUBE?
     Dates: start: 20191016, end: 20191224
  7. KEPPRA [Concomitant]
     Active Substance: LEVETIRACETAM

REACTIONS (1)
  - Rash [None]

NARRATIVE: CASE EVENT DATE: 20191017
